FAERS Safety Report 8943141 (Version 2)
Quarter: 2013Q1

REPORT INFORMATION
  Report Type: Spontaneous
  Country: US (occurrence: None)
  Receive Date: 20121121
  Receipt Date: 20130115
  Transmission Date: 20140127
  Serious: Yes (Other)
  Sender: FDA-Public Use
  Company Number: US-009488

PATIENT
  Age: 82 Year
  Sex: Male
  Weight: 68.04 kg

DRUGS (10)
  1. DEGARELIX [Suspect]
     Indication: PRODUCT USED FOR UNKNOWN INDICATION
     Dates: start: 20120913, end: 20120913
  2. TERAZOSIN [Concomitant]
  3. GUANFACINE [Concomitant]
  4. EPLERENONE [Concomitant]
  5. MICARDIS HCT [Concomitant]
  6. NIFEDICAL XL [Concomitant]
  7. AVODART [Concomitant]
  8. MULTIVITAMINS [Concomitant]
  9. COSOPT [Concomitant]
  10. PREVACID [Concomitant]

REACTIONS (8)
  - Injection site pain [None]
  - Insomnia [None]
  - Discomfort [None]
  - Fatigue [None]
  - Pneumonia [None]
  - Pleural effusion [None]
  - Asthenia [None]
  - Lung consolidation [None]
